FAERS Safety Report 7064840-5 (Version None)
Quarter: 2010Q4

REPORT INFORMATION
  Report Type: 
  Country: None (occurrence: None)
  Receive Date: 20101027
  Receipt Date: 19880826
  Transmission Date: 20110411
  Serious: Yes (Death)
  Sender: FDA-Public Use
  Company Number: US-ROCHE-880201046001

PATIENT
  Sex: Male
  Weight: 79.4 kg

DRUGS (2)
  1. INTERFERON ALFA-2A [Suspect]
     Indication: RENAL CELL CARCINOMA
     Route: 030
     Dates: start: 19871231
  2. INTERFERON ALFA-2A [Suspect]
     Route: 030
     Dates: end: 19880816

REACTIONS (2)
  - DIABETES MELLITUS [None]
  - MALIGNANT NEOPLASM PROGRESSION [None]
